FAERS Safety Report 9964052 (Version 2)
Quarter: 2014Q2

REPORT INFORMATION
  Report Type: Spontaneous
  Country: FR (occurrence: FR)
  Receive Date: 20140305
  Receipt Date: 20140415
  Transmission Date: 20141212
  Serious: Yes (Hospitalization)
  Sender: FDA-Public Use
  Company Number: FR-GLAXOSMITHKLINE-B0972486A

PATIENT
  Age: 93 Year
  Sex: Female

DRUGS (8)
  1. ARIXTRA [Suspect]
     Indication: DEEP VEIN THROMBOSIS
     Dosage: 5MG PER DAY
     Route: 065
     Dates: start: 20131112, end: 20140211
  2. PARACETAMOL [Concomitant]
     Dosage: 2CAP THREE TIMES PER DAY
     Route: 048
  3. ATENOLOL [Concomitant]
     Dosage: 50MG IN THE MORNING
     Route: 048
  4. DAFLON [Concomitant]
     Dosage: 500MG TWICE PER DAY
     Route: 048
  5. MOVICOL [Concomitant]
     Dosage: 1UNIT IN THE MORNING
     Route: 048
  6. PARIET [Concomitant]
     Dosage: 10MG AT NIGHT
     Route: 048
  7. PERINDOPRIL [Concomitant]
     Dosage: 4MG IN THE MORNING
     Route: 048
  8. RILMENIDINE [Concomitant]
     Dosage: 1MG IN THE MORNING
     Route: 048

REACTIONS (2)
  - Haematoma [Recovered/Resolved]
  - Incorrect drug administration duration [Unknown]
